FAERS Safety Report 21486725 (Version 1)
Quarter: 2022Q4

REPORT INFORMATION
  Report Type: Spontaneous
  Country: US (occurrence: US)
  Receive Date: 20221020
  Receipt Date: 20221020
  Transmission Date: 20230112
  Serious: Yes (Hospitalization, Other)
  Sender: FDA-Public Use
  Company Number: US-HORIZON THERAPEUTICS-HZN-2022-008101

PATIENT

DRUGS (7)
  1. RAYOS [Suspect]
     Active Substance: PREDNISONE
     Indication: Chronic obstructive pulmonary disease
     Dosage: PROLONGED PREDNISONE TAPER
     Route: 065
  2. UNSPECIFIED INGREDIENT [Concomitant]
     Active Substance: UNSPECIFIED INGREDIENT
     Route: 042
  3. VANCOMYCIN [Concomitant]
     Active Substance: VANCOMYCIN
  4. PIPERACILLIN SODIUM\TAZOBACTAM SODIUM [Concomitant]
     Active Substance: PIPERACILLIN SODIUM\TAZOBACTAM SODIUM
  5. IVERMECTIN [Concomitant]
     Active Substance: IVERMECTIN
  6. OXYGEN [Concomitant]
     Active Substance: OXYGEN
     Dosage: 4 L
     Route: 045
  7. OXYGEN [Concomitant]
     Active Substance: OXYGEN
     Dosage: 5 L
     Route: 045

REACTIONS (2)
  - Respiratory failure [Recovered/Resolved]
  - Strongyloidiasis [Recovered/Resolved]
